FAERS Safety Report 9704831 (Version 3)
Quarter: 2013Q4

REPORT INFORMATION
  Report Type: Report from Study
  Country: US (occurrence: US)
  Receive Date: 20131122
  Receipt Date: 20131202
  Transmission Date: 20140711
  Serious: Yes (Hospitalization, Disabling, Other)
  Sender: FDA-Public Use
  Company Number: US-PFIZER INC-2013332806

PATIENT
  Age: 35 Year
  Sex: Female
  Weight: 72.6 kg

DRUGS (71)
  1. XANAX [Suspect]
     Indication: STRESS
     Dosage: 1 MG, 3X/DAY
     Dates: start: 1985
  2. DIAZEPAM [Suspect]
     Dosage: 10 MG, 3X/DAY
  3. CELEBREX [Suspect]
     Indication: ARTHRITIS
     Dosage: 200 MG, 1X/DAY
  4. CELEBREX [Suspect]
     Indication: PAIN
     Dosage: 100 MG, 2X/DAY
  5. DIFLUCAN [Suspect]
     Dosage: UNK
  6. NEURONTIN [Suspect]
     Indication: MUSCLE SPASMS
     Dosage: 150MG TO 300MG AT BEDTIME
  7. TRIAZOLAM [Suspect]
     Dosage: 0.3 MG, 1X/DAY
  8. TRIAZOLAM [Suspect]
     Dosage: 0.25 MG, 1X/DAY
  9. COVERA-HS [Suspect]
     Indication: ANGINA PECTORIS
     Dosage: 120 MG, 1X/DAY
  10. LOMOTIL [Suspect]
     Dosage: UNK
  11. DEXAMETHASONE SODIUM PHOSPHATE [Suspect]
     Dosage: UNK
  12. XALATAN [Suspect]
     Indication: GLAUCOMA
     Dosage: UNK
     Route: 047
     Dates: start: 2000
  13. ARTHROTEC [Suspect]
     Dosage: UNK
  14. SKELAXIN [Suspect]
     Dosage: UNK, AS NEEDED
  15. NORVASC [Suspect]
     Dosage: 5 MG, 1X/DAY
  16. VALIUM [Suspect]
     Dosage: 10 MG, UNK
  17. ZYRTEC [Suspect]
     Indication: MULTIPLE ALLERGIES
     Dosage: UNK
     Dates: start: 2003
  18. ZYRTEC [Suspect]
     Indication: HYPERSENSITIVITY
  19. COVERA [Suspect]
     Indication: HYPERTENSION
     Dosage: 120 MG, 1X/DAY
  20. LASIX [Suspect]
     Indication: HYPERTENSION
     Dosage: 40 MG, 1X/DAY
  21. ZIAC [Suspect]
     Indication: HYPERTENSION
     Dosage: UNK
  22. COZAAR [Suspect]
     Indication: HYPERTENSION
     Dosage: UNK
     Dates: start: 2002
  23. DESYREL [Suspect]
     Dosage: UNK, 1X/DAY
  24. KLONOPIN [Suspect]
     Indication: MUSCLE SPASMS
     Dosage: UNK
  25. PROZAC [Suspect]
     Dosage: UNK
  26. ERYTHROMYCIN [Suspect]
     Dosage: 500 MG, 1X/DAY
  27. CEFAZOLIN [Suspect]
     Dosage: 250 MG, 2X/DAY
     Route: 048
  28. METOPROLOL [Interacting]
     Indication: HYPERTENSION
     Dosage: UNK
     Route: 048
  29. LISINOPRIL [Interacting]
     Indication: HYPERTENSION
     Dosage: UNK
     Route: 048
  30. DECADRON [Suspect]
     Dosage: UNK
  31. SOMA [Suspect]
     Dosage: UNK, 4XDAIY
     Route: 048
  32. MYCELEX [Suspect]
     Dosage: UNK
  33. ALLEGRA-D [Suspect]
     Dosage: UNK
  34. NASONEX [Suspect]
     Dosage: UNK
  35. ATACAND [Interacting]
     Dosage: UNK
     Route: 048
     Dates: start: 2003
  36. PREVACID [Suspect]
     Dosage: UNK
  37. LOTRISONE [Suspect]
     Dosage: UNK
  38. NEXIUM [Interacting]
     Dosage: UNK
     Route: 048
  39. MAXALT-MLT [Suspect]
     Dosage: UNK
  40. NIZORAL [Suspect]
     Dosage: 200 MG, DAILY
  41. SINEMET [Suspect]
     Dosage: UNK
  42. ULTRAM [Suspect]
     Dosage: UNK, AS NEEDED
  43. BACTRIM DS [Suspect]
     Dosage: UNK, 2X/DAY
  44. PROLEX DH [Suspect]
     Dosage: UNK
  45. MEPERGAN FORTIS [Suspect]
     Dosage: UNK
  46. PERCOCET [Suspect]
     Dosage: UNK
  47. ADVAIR [Suspect]
     Dosage: UNK
     Route: 055
  48. CODICLEAR [Suspect]
     Dosage: UNK
  49. BACTRIM [Suspect]
     Dosage: UNK
  50. AVALOX [Suspect]
     Dosage: UNK
  51. VIOXX [Suspect]
     Dosage: UNK
  52. FLUTICASONE [Suspect]
     Dosage: UNK
  53. DURATUSS [Suspect]
     Dosage: UNK
  54. LORTAB [Suspect]
     Dosage: UNK
     Route: 048
  55. KEFLEX [Suspect]
     Dosage: 500 MG, 3X/DAY
     Route: 048
  56. BACTROBAN [Suspect]
     Dosage: UNK
     Route: 061
  57. TAMIFLU [Suspect]
     Dosage: 75 MG, 2X/DAY
  58. ENDAL-HD [Suspect]
     Dosage: UNK, AS NEEDED
  59. QUININE SULFATE [Suspect]
     Dosage: UNK
  60. TRIAMCINOLONE [Suspect]
     Dosage: UNK
     Route: 030
  61. BUPROPION HYDROCHLORIDE [Suspect]
     Dosage: 300 MG, 1X/DAY
  62. ZEBETA [Suspect]
     Dosage: UNK
  63. MOBIC [Suspect]
     Dosage: UNK
  64. BENICAR [Suspect]
     Indication: HYPERTENSION
     Dosage: 40 MG, 1X/DAY
  65. PRILOSEC [Interacting]
     Dosage: UNK
     Route: 048
  66. AUGMENTIN [Interacting]
     Dosage: 875 MG, 2X/DAY
  67. EXGEST LA [Suspect]
     Dosage: UNK, 2X/DAY
     Route: 048
  68. MESCOLOR [Suspect]
     Dosage: UNK, 2X/DAY
  69. ECONAZOLE NITRATE [Suspect]
     Dosage: UNK
  70. SUCRALFATE [Suspect]
     Dosage: UNK
  71. ATENOLOL [Interacting]
     Indication: HYPERTENSION
     Dosage: 50 MG, 1X/DAY
     Route: 048

REACTIONS (15)
  - Drug interaction [Not Recovered/Not Resolved]
  - Cholelithiasis [Unknown]
  - Glaucoma [Unknown]
  - Neuropathy peripheral [Unknown]
  - Purpura senile [Unknown]
  - Resorption bone increased [Not Recovered/Not Resolved]
  - Tarsal tunnel syndrome [Unknown]
  - Thrombophlebitis [Unknown]
  - Vestibular disorder [Unknown]
  - Vasculitis [Unknown]
  - Arthritis [Not Recovered/Not Resolved]
  - Bronchitis [Unknown]
  - Blood cholesterol increased [Not Recovered/Not Resolved]
  - Renal failure [Recovered/Resolved]
  - Hypertension [Unknown]
